FAERS Safety Report 11071675 (Version 1)
Quarter: 2015Q2

REPORT INFORMATION
  Report Type: Spontaneous
  Country: US (occurrence: US)
  Receive Date: 20150428
  Receipt Date: 20150428
  Transmission Date: 20150821
  Serious: Yes (Hospitalization, Other)
  Sender: FDA-Public Use
  Company Number: US-AMGEN-USASP2015039752

PATIENT
  Age: 57 Year
  Sex: Male

DRUGS (1)
  1. ENBREL [Suspect]
     Active Substance: ETANERCEPT
     Indication: RHEUMATOID ARTHRITIS
     Dosage: 50 MG, QWK
     Route: 065
     Dates: start: 20030901

REACTIONS (8)
  - Unevaluable event [Recovered/Resolved]
  - Knee arthroplasty [Recovered/Resolved]
  - Bone graft [Recovered/Resolved]
  - Rheumatoid arthritis [Unknown]
  - Shoulder arthroplasty [Recovered/Resolved]
  - Arthrodesis [Recovered/Resolved]
  - Localised infection [Recovered/Resolved]
  - Sensitivity to weather change [Unknown]

NARRATIVE: CASE EVENT DATE: 200802
